FAERS Safety Report 5823943-0 (Version None)
Quarter: 2008Q3

REPORT INFORMATION
  Report Type: 
  Country: None (occurrence: None)
  Receive Date: 20080724
  Receipt Date: 20080710
  Transmission Date: 20090109
  Serious: Yes (Death)
  Sender: FDA-Public Use
  Company Number: 236548J08USA

PATIENT
  Age: 72 Year
  Sex: Female

DRUGS (3)
  1. REBIF [Suspect]
     Indication: MULTIPLE SCLEROSIS
     Dosage: 44 MCG, NOT REPORTED, NOT REPORTED
     Dates: start: 20040426, end: 20070901
  2. INSULIN (INSULIN) [Concomitant]
  3. UNSPECIFIED MEDICATIONS       (ALL OTHER THERAPEUTIC PRODUCTS) [Concomitant]

REACTIONS (1)
  - RENAL FAILURE [None]
